FAERS Safety Report 11583625 (Version 2)
Quarter: 2015Q4

REPORT INFORMATION
  Report Type: Spontaneous
  Country: DE (occurrence: DE)
  Receive Date: 20151001
  Receipt Date: 20151211
  Transmission Date: 20160304
  Serious: Yes (Other)
  Sender: FDA-Public Use
  Company Number: DE-JNJFOC-20150927436

PATIENT
  Sex: Male
  Weight: 97 kg

DRUGS (10)
  1. SILDENAFIL. [Concomitant]
     Active Substance: SILDENAFIL
     Route: 065
  2. XARELTO [Suspect]
     Active Substance: RIVAROXABAN
     Indication: ATRIAL FIBRILLATION
     Route: 048
     Dates: start: 201511
  3. RAMIPRIL. [Concomitant]
     Active Substance: RAMIPRIL
     Route: 065
  4. ESOMEPRAZOLE [Concomitant]
     Active Substance: ESOMEPRAZOLE
     Route: 065
  5. XARELTO [Suspect]
     Active Substance: RIVAROXABAN
     Indication: CEREBROVASCULAR ACCIDENT PROPHYLAXIS
     Route: 048
     Dates: start: 201505, end: 201511
  6. XARELTO [Suspect]
     Active Substance: RIVAROXABAN
     Indication: CARDIOVERSION
     Route: 048
     Dates: start: 201505, end: 201511
  7. XARELTO [Suspect]
     Active Substance: RIVAROXABAN
     Indication: ATRIAL FIBRILLATION
     Route: 048
     Dates: start: 201505, end: 201511
  8. METOPROLOL [Concomitant]
     Active Substance: METOPROLOL
     Route: 065
  9. XARELTO [Suspect]
     Active Substance: RIVAROXABAN
     Indication: CEREBROVASCULAR ACCIDENT PROPHYLAXIS
     Route: 048
     Dates: start: 201511
  10. XARELTO [Suspect]
     Active Substance: RIVAROXABAN
     Indication: CARDIOVERSION
     Route: 048
     Dates: start: 201511

REACTIONS (5)
  - Haematuria [Recovered/Resolved]
  - Chromaturia [Unknown]
  - Prostatic pain [Unknown]
  - Chromaturia [Recovered/Resolved]
  - Renal cyst [Unknown]
